FAERS Safety Report 24422021 (Version 2)
Quarter: 2025Q1

REPORT INFORMATION
  Report Type: Spontaneous
  Country: ES (occurrence: ES)
  Receive Date: 20241010
  Receipt Date: 20250113
  Transmission Date: 20250408
  Serious: Yes (Life-Threatening, Hospitalization, Other)
  Sender: SUNOVION
  Company Number: ES-BIAL-BIAL-17483

PATIENT

DRUGS (6)
  1. ESLICARBAZEPINE ACETATE [Suspect]
     Active Substance: ESLICARBAZEPINE ACETATE
     Indication: Petit mal epilepsy
     Dosage: 1200 MILLIGRAM, QD
     Route: 048
     Dates: start: 20240416, end: 20240522
  2. CALCIFEDIOL [Suspect]
     Active Substance: CALCIFEDIOL
     Indication: Hypovitaminosis
     Route: 048
     Dates: start: 20240415, end: 20240522
  3. CLOBAZAM [Concomitant]
     Active Substance: CLOBAZAM
     Indication: Petit mal epilepsy
     Dosage: 20 MILLIGRAM, BID (12 HOURS)
     Route: 048
     Dates: start: 20230531
  4. ZYPREXA [Concomitant]
     Active Substance: OLANZAPINE
     Indication: Intellectual disability
     Dosage: 5 MILLIGRAM, QD
     Route: 048
     Dates: start: 20130124
  5. KEPPRA [Concomitant]
     Active Substance: LEVETIRACETAM
     Indication: Petit mal epilepsy
     Dosage: 1500 MILLIGRAM, BID (12 HOURS)
     Route: 048
     Dates: start: 20120704
  6. SERTRALINE HYDROCHLORIDE [Concomitant]
     Active Substance: SERTRALINE HYDROCHLORIDE
     Indication: Intellectual disability
     Dosage: 200 MILLIGRAM, QD
     Route: 048
     Dates: start: 20160222

REACTIONS (7)
  - Acute respiratory distress syndrome [Recovered/Resolved]
  - Pleural effusion [Recovered/Resolved]
  - Hepatic failure [Recovered/Resolved]
  - Gastrointestinal disorder [Recovered/Resolved]
  - Thrombocytopenia [Recovered/Resolved]
  - Drug reaction with eosinophilia and systemic symptoms [Recovered/Resolved]
  - Lung infiltration [Recovered/Resolved]

NARRATIVE: CASE EVENT DATE: 20240515
